FAERS Safety Report 8263780-3 (Version None)
Quarter: 2012Q2

REPORT INFORMATION
  Report Type: 
  Country: None (occurrence: None)
  Receive Date: 20120405
  Receipt Date: 20120321
  Transmission Date: 20120825
  Serious: Yes (Other)
  Sender: FDA-Public Use
  Company Number: CHPA2012US005606

PATIENT
  Age: 39 Year
  Sex: Female

DRUGS (1)
  1. BENEFIBER W/ WHEAT DEXTRIN [Suspect]
     Indication: ASTHENIA
     Dosage: 12-15 TSP, BID
     Route: 048
     Dates: start: 20110101

REACTIONS (4)
  - DRUG DEPENDENCE [None]
  - OFF LABEL USE [None]
  - THERAPEUTIC RESPONSE UNEXPECTED [None]
  - OVERDOSE [None]
